FAERS Safety Report 6314136-1 (Version None)
Quarter: 2009Q3

REPORT INFORMATION
  Report Type: 
  Country: None (occurrence: None)
  Receive Date: 20090817
  Receipt Date: 20090806
  Transmission Date: 20100115
  Serious: Yes (Hospitalization)
  Sender: FDA-Public Use
  Company Number: 09-001196

PATIENT
  Age: 58 Year
  Sex: Female
  Weight: 69.4 kg

DRUGS (9)
  1. ESTRACE [Suspect]
     Indication: ATROPHIC VULVOVAGINITIS
     Dosage: QD, TOPICAL
     Route: 061
     Dates: start: 20090601, end: 20090601
  2. WELLBUTRIN [Concomitant]
  3. PRAVACHOL [Concomitant]
  4. ABILIFY [Concomitant]
  5. DOCUSATE SODIUM (DOCUSATE SODIUM) [Concomitant]
  6. EFFEXOR XR [Concomitant]
  7. GABAPENTIN [Concomitant]
  8. GLYCOLAX (MACROGOL) [Concomitant]
  9. HYOSCYAMINE (HYOSCYAMINE) [Concomitant]

REACTIONS (11)
  - BLISTER [None]
  - CONFUSIONAL STATE [None]
  - DERMATITIS ALLERGIC [None]
  - DYSURIA [None]
  - ERYTHEMA MULTIFORME [None]
  - EYE BURNS [None]
  - PYREXIA [None]
  - SCAR [None]
  - VULVOVAGINAL BURNING SENSATION [None]
  - VULVOVAGINAL PAIN [None]
  - VULVOVAGINAL PRURITUS [None]
